FAERS Safety Report 19815473 (Version 2)
Quarter: 2021Q4

REPORT INFORMATION
  Report Type: Report from Study
  Country: ZA (occurrence: ZA)
  Receive Date: 20210909
  Receipt Date: 20211104
  Transmission Date: 20220303
  Serious: Yes (Disabling, Other)
  Sender: FDA-Public Use
  Company Number: ZA-SA-SAC20210322000670

PATIENT
  Age: 53 Year
  Sex: Male

DRUGS (1)
  1. TERIFLUNOMIDE [Suspect]
     Active Substance: TERIFLUNOMIDE
     Indication: Relapsing-remitting multiple sclerosis
     Dosage: 14 MG, QD
     Route: 048
     Dates: start: 20200827

REACTIONS (6)
  - Expanded disability status scale score increased [Unknown]
  - Optic neuritis [Unknown]
  - Multiple sclerosis relapse [Unknown]
  - Ataxia [Unknown]
  - Memory impairment [Unknown]
  - Frequent bowel movements [Unknown]

NARRATIVE: CASE EVENT DATE: 20201201
